FAERS Safety Report 25943150 (Version 1)
Quarter: 2025Q4

REPORT INFORMATION
  Report Type: Spontaneous
  Country: US (occurrence: None)
  Receive Date: 20251020
  Receipt Date: 20251020
  Transmission Date: 20260118
  Serious: Yes (Life-Threatening, Hospitalization)
  Sender: FDA-CTU
  Company Number: None

PATIENT
  Age: 78 Year
  Sex: Female
  Weight: 72.9 kg

DRUGS (1)
  1. KISUNLA [Suspect]
     Active Substance: DONANEMAB-AZBT
     Indication: Dementia Alzheimer^s type
     Dosage: OTHER FREQUENCY : Q4 WEEKS;?
     Route: 042
     Dates: start: 20250922

REACTIONS (5)
  - Infusion related reaction [None]
  - Malaise [None]
  - Flushing [None]
  - Lacrimation increased [None]
  - Chest discomfort [None]

NARRATIVE: CASE EVENT DATE: 20251020
